FAERS Safety Report 23749352 (Version 1)
Quarter: 2024Q2

REPORT INFORMATION
  Report Type: Spontaneous
  Country: US (occurrence: None)
  Receive Date: 20240416
  Receipt Date: 20240416
  Transmission Date: 20240716
  Serious: Yes (Other)
  Sender: FDA-Public Use
  Company Number: 2024A086466

PATIENT
  Sex: Female

DRUGS (1)
  1. TRUQAP [Suspect]
     Active Substance: CAPIVASERTIB
     Route: 048

REACTIONS (8)
  - Neoplasm malignant [Unknown]
  - Skin disorder [Unknown]
  - Pyrexia [Unknown]
  - Hypotension [Unknown]
  - Incoherent [Unknown]
  - Gait inability [Unknown]
  - Fatigue [Unknown]
  - Diarrhoea [Unknown]
